FAERS Safety Report 7336107-9 (Version None)
Quarter: 2011Q1

REPORT INFORMATION
  Report Type: 
  Country: None (occurrence: None)
  Receive Date: 20110301
  Receipt Date: 20110301
  Transmission Date: 20110831
  Serious: Yes (Hospitalization)
  Sender: FDA-Public Use
  Company Number: None

PATIENT
  Age: 64 Year
  Sex: Male

DRUGS (1)
  1. IMIPENEM AND CILASTATIN SODIUM [Suspect]
     Indication: FEBRILE NEUTROPENIA
     Dosage: 500 MG QID IV
     Route: 042
     Dates: start: 20110215, end: 20110216

REACTIONS (3)
  - URTICARIA [None]
  - RASH [None]
  - PRURITUS [None]
